FAERS Safety Report 12599682 (Version 1)
Quarter: 2016Q3

REPORT INFORMATION
  Report Type: Spontaneous
  Country: US (occurrence: US)
  Receive Date: 20160727
  Receipt Date: 20160727
  Transmission Date: 20161109
  Serious: Yes (Hospitalization)
  Sender: FDA-Public Use
  Company Number: US-SA-2015SA135467

PATIENT
  Age: 55 Year
  Sex: Female
  Weight: 99 kg

DRUGS (1)
  1. AMBIEN [Suspect]
     Active Substance: ZOLPIDEM TARTRATE
     Indication: SLEEP DISORDER
     Dosage: MAYBE TEN TABLETS, LESS THAN A DOZEN TABLETS
     Route: 048
     Dates: start: 201507, end: 201507

REACTIONS (4)
  - Expired product administered [Unknown]
  - Loss of consciousness [Recovered/Resolved]
  - Intentional overdose [Unknown]
  - Hypersomnia [Recovered/Resolved]
